FAERS Safety Report 9293247 (Version 3)
Quarter: 2013Q2

REPORT INFORMATION
  Report Type: Report from Study
  Country: JP (occurrence: JP)
  Receive Date: 20130516
  Receipt Date: 20130621
  Transmission Date: 20140414
  Serious: Yes (Other)
  Sender: FDA-Public Use
  Company Number: JP-ELI_LILLY_AND_COMPANY-JP201302010033

PATIENT
  Age: 88 Year
  Sex: Female

DRUGS (1)
  1. TERIPARATIDE [Suspect]
     Dosage: UNK
     Route: 058
     Dates: start: 20130226

REACTIONS (14)
  - Wrist fracture [Recovered/Resolved]
  - Injection site discolouration [Recovered/Resolved]
  - Bone pain [Recovering/Resolving]
  - Hot flush [Unknown]
  - Insomnia [Unknown]
  - Asthenia [Unknown]
  - Weight decreased [Unknown]
  - Decreased appetite [Unknown]
  - Dizziness [Not Recovered/Not Resolved]
  - Malaise [Unknown]
  - Oedema peripheral [Not Recovered/Not Resolved]
  - Fatigue [Unknown]
  - Muscle contusion [Unknown]
  - Nausea [Recovered/Resolved]
